FAERS Safety Report 9258273 (Version 2)
Quarter: 2013Q2

REPORT INFORMATION
  Report Type: Spontaneous
  Country: US (occurrence: US)
  Receive Date: 20130426
  Receipt Date: 20130618
  Transmission Date: 20140414
  Serious: No
  Sender: FDA-Public Use
  Company Number: US-B.I. PHARMACEUTICALS,INC./RIDGEFIELD-2013-BI-10014BP

PATIENT
  Sex: Female

DRUGS (1)
  1. ATROVENT [Suspect]
     Indication: INHALATION THERAPY
     Route: 055

REACTIONS (3)
  - Blood pressure increased [Unknown]
  - Palpitations [Not Recovered/Not Resolved]
  - Product quality issue [Unknown]
